FAERS Safety Report 6947085-6 (Version None)
Quarter: 2010Q3

REPORT INFORMATION
  Report Type: 
  Country: None (occurrence: None)
  Receive Date: 20100827
  Receipt Date: 20090824
  Transmission Date: 20110219
  Serious: No
  Sender: FDA-Public Use
  Company Number: US-ABBOTT-09P-163-0593867-00

PATIENT
  Sex: Male
  Weight: 81.72 kg

DRUGS (9)
  1. NIASPAN [Suspect]
     Indication: HIGH DENSITY LIPOPROTEIN DECREASED
     Route: 048
     Dates: start: 20070101, end: 20090501
  2. NIASPAN [Suspect]
     Route: 048
     Dates: start: 20090501, end: 20090816
  3. ZETIA [Concomitant]
     Indication: BLOOD CHOLESTEROL
     Route: 048
  4. LIPITOR [Concomitant]
     Indication: BLOOD CHOLESTEROL
     Route: 048
  5. BYSTOLIC [Concomitant]
     Indication: HYPERTENSION
     Route: 048
  6. MICARDIS HCT [Concomitant]
     Indication: HYPERTENSION
     Dosage: 80/12.5
     Route: 048
  7. LOTREL [Concomitant]
     Indication: HYPERTENSION
     Dosage: 10/40
     Route: 048
  8. BIETTA [Concomitant]
     Indication: DIABETES MELLITUS
     Route: 048
  9. LOVAZA [Concomitant]
     Indication: MEDICAL DIET
     Route: 048

REACTIONS (3)
  - BLOOD URIC ACID INCREASED [None]
  - GOUT [None]
  - PROSTATIC SPECIFIC ANTIGEN INCREASED [None]
